FAERS Safety Report 12252997 (Version 3)
Quarter: 2016Q2

REPORT INFORMATION
  Report Type: Spontaneous
  Country: JP (occurrence: JP)
  Receive Date: 20160411
  Receipt Date: 20160429
  Transmission Date: 20160815
  Serious: Yes (Death, Hospitalization, Other)
  Sender: FDA-Public Use
  Company Number: JP-TEVA-650383ISR

PATIENT
  Age: 25 Year
  Sex: Male

DRUGS (9)
  1. PREDNISOLONE. [Suspect]
     Active Substance: PREDNISOLONE
  2. VINCRISTINE [Suspect]
     Active Substance: VINCRISTINE
  3. CICLOSPORIN [Suspect]
     Active Substance: CYCLOSPORINE
  4. PREDNISOLONE. [Suspect]
     Active Substance: PREDNISOLONE
  5. ETOPOSIDE. [Concomitant]
     Active Substance: ETOPOSIDE
  6. CYCLOPHOSPHAMIDE. [Suspect]
     Active Substance: CYCLOPHOSPHAMIDE
  7. DOXORUBICIN [Suspect]
     Active Substance: DOXORUBICIN
  8. CICLOSPORIN [Suspect]
     Active Substance: CYCLOSPORINE
     Dates: start: 201209
  9. CICLOSPORIN [Suspect]
     Active Substance: CYCLOSPORINE
     Indication: CHRONIC GRAFT VERSUS HOST DISEASE

REACTIONS (2)
  - Epstein-Barr virus associated lymphoproliferative disorder [Not Recovered/Not Resolved]
  - Cardiac failure [Fatal]
